FAERS Safety Report 19122672 (Version 2)
Quarter: 2021Q2

REPORT INFORMATION
  Report Type: Spontaneous
  Country: US (occurrence: US)
  Receive Date: 20210412
  Receipt Date: 20210416
  Transmission Date: 20210717
  Serious: Yes (Other)
  Sender: FDA-Public Use
  Company Number: US-SA-2021SA118304

PATIENT
  Age: 31 Year
  Sex: Female

DRUGS (15)
  1. METRONIDAZOLE. [Concomitant]
     Active Substance: METRONIDAZOLE
     Indication: CROHN^S DISEASE
     Dosage: UNK
     Route: 048
  2. ELIDEL [Suspect]
     Active Substance: PIMECROLIMUS
     Indication: CROHN^S DISEASE
  3. MERCAPTOPURINE. [Suspect]
     Active Substance: MERCAPTOPURINE
     Indication: CROHN^S DISEASE
     Dosage: UNK
  4. PREDNISONE. [Suspect]
     Active Substance: PREDNISONE
     Indication: VULVAL DISORDER
  5. INFLIXIMAB [Suspect]
     Active Substance: INFLIXIMAB
     Indication: CROHN^S DISEASE
     Dosage: UNK
  6. METRONIDAZOLE. [Concomitant]
     Active Substance: METRONIDAZOLE
     Indication: VULVAL DISORDER
     Dosage: GEL 0.75%
     Route: 061
  7. PREDNISONE. [Suspect]
     Active Substance: PREDNISONE
     Indication: CROHN^S DISEASE
     Dosage: UNK
     Route: 048
  8. ELIDEL [Suspect]
     Active Substance: PIMECROLIMUS
     Indication: VULVAL DISORDER
     Dosage: UNKN 1% STRENGTH
     Route: 061
  9. CLOBETASOL PROPIONATE. [Suspect]
     Active Substance: CLOBETASOL PROPIONATE
     Indication: VULVAL DISORDER
  10. TRIAMCINOLONE ACETONIDE. [Suspect]
     Active Substance: TRIAMCINOLONE ACETONIDE
     Indication: VULVAL DISORDER
  11. CLOBETASOL PROPIONATE. [Suspect]
     Active Substance: CLOBETASOL PROPIONATE
     Indication: CROHN^S DISEASE
     Dosage: UNK 0.05% STRENGTH
     Route: 061
  12. TRIAMCINOLONE ACETONIDE. [Suspect]
     Active Substance: TRIAMCINOLONE ACETONIDE
     Indication: CROHN^S DISEASE
     Dosage: UNK
     Route: 026
  13. CERTOLIZUMAB PEGOL [Suspect]
     Active Substance: CERTOLIZUMAB PEGOL
     Indication: CROHN^S DISEASE
     Dosage: UNK
  14. METRONIDAZOLE. [Concomitant]
     Active Substance: METRONIDAZOLE
     Indication: CONDITION AGGRAVATED
  15. ADALIMUMAB [Suspect]
     Active Substance: ADALIMUMAB
     Indication: CROHN^S DISEASE
     Dosage: UNK

REACTIONS (14)
  - Vulvovaginal erythema [Recovered/Resolved]
  - Vulval ulceration [Recovering/Resolving]
  - Staphylococcal infection [Recovering/Resolving]
  - Condition aggravated [Recovering/Resolving]
  - Vaginal discharge [Recovering/Resolving]
  - Crohn^s disease [Recovering/Resolving]
  - Vulval disorder [Recovering/Resolving]
  - Vulvar erosion [Recovering/Resolving]
  - Vulvovaginal injury [Recovered/Resolved]
  - Skin plaque [Recovering/Resolving]
  - Beta haemolytic streptococcal infection [Recovering/Resolving]
  - Pustule [Recovered/Resolved]
  - Vulval oedema [Recovering/Resolving]
  - Vulvovaginal pruritus [Recovering/Resolving]
